FAERS Safety Report 11655376 (Version 1)
Quarter: 2015Q4

REPORT INFORMATION
  Report Type: Spontaneous
  Country: US (occurrence: US)
  Receive Date: 20151023
  Receipt Date: 20151023
  Transmission Date: 20160304
  Serious: Yes (Other)
  Sender: FDA-Public Use
  Company Number: US-SA-2015SA166511

PATIENT
  Age: 82 Year
  Sex: Male

DRUGS (3)
  1. IRON [Concomitant]
     Active Substance: IRON
     Route: 042
  2. CALCIUM ACETATE. [Concomitant]
     Active Substance: CALCIUM ACETATE
  3. RENVELA [Suspect]
     Active Substance: SEVELAMER CARBONATE
     Route: 065

REACTIONS (5)
  - Haemoglobin decreased [Unknown]
  - Hyperphosphataemia [Unknown]
  - Transferrin saturation increased [Unknown]
  - Hypercalcaemia [Unknown]
  - Serum ferritin increased [Unknown]
